FAERS Safety Report 9458673 (Version 1)
Quarter: 2013Q3

REPORT INFORMATION
  Report Type: Spontaneous
  Country: DE (occurrence: DE)
  Receive Date: 20130814
  Receipt Date: 20130814
  Transmission Date: 20140515
  Serious: Yes (Hospitalization, Congenital Anomaly, Other)
  Sender: FDA-Public Use
  Company Number: DE-009507513-1308DEU004671

PATIENT
  Age: 1 Day
  Sex: Male

DRUGS (3)
  1. MIRTAZAPINE [Suspect]
     Indication: DEPRESSION
     Dosage: 30 MG PER DAY
     Route: 064
  2. FOLSAN [Concomitant]
     Indication: PROPHYLAXIS OF NEURAL TUBE DEFECT
     Dosage: 0.8 MG, QD
     Route: 064
  3. FOLSAN [Concomitant]
     Dosage: 800 MICROGRAM, QD

REACTIONS (7)
  - Congenital diaphragmatic hernia [Recovered/Resolved with Sequelae]
  - Hypospadias [Unknown]
  - Cryptorchism [Recovering/Resolving]
  - Inguinal hernia [Unknown]
  - Patent ductus arteriosus [Recovered/Resolved]
  - Small for dates baby [Unknown]
  - Foetal exposure during pregnancy [Unknown]
